FAERS Safety Report 11031935 (Version 5)
Quarter: 2015Q4

REPORT INFORMATION
  Report Type: Spontaneous
  Country: CH (occurrence: DE)
  Receive Date: 20150415
  Receipt Date: 20151223
  Transmission Date: 20160304
  Serious: Yes (Hospitalization, Other)
  Sender: FDA-Public Use
  Company Number: DE-PFIZER INC-2015126721

PATIENT
  Age: 79 Year
  Sex: Female

DRUGS (1)
  1. CLINDAMYCIN HCL [Suspect]
     Active Substance: CLINDAMYCIN HYDROCHLORIDE
     Indication: STREPTOCOCCAL INFECTION
     Dosage: 600 MG (2 X 300 MG), 3X/DAY
     Dates: start: 20140930, end: 20141013

REACTIONS (7)
  - Rectal haemorrhage [Unknown]
  - Dysbacteriosis [Not Recovered/Not Resolved]
  - Vasculitis [Unknown]
  - Peripheral swelling [Unknown]
  - Painful defaecation [Unknown]
  - Pain in extremity [Unknown]
  - Rash scarlatiniform [Unknown]

NARRATIVE: CASE EVENT DATE: 20141014
